FAERS Safety Report 24165026 (Version 5)
Quarter: 2024Q4

REPORT INFORMATION
  Report Type: Report from Study
  Country: JP (occurrence: JP)
  Receive Date: 20240802
  Receipt Date: 20241213
  Transmission Date: 20250114
  Serious: Yes (Hospitalization)
  Sender: ROCHE
  Company Number: JP-CHUGAI-2024025655

PATIENT
  Age: 57 Year
  Sex: Male
  Weight: 74.2 kg

DRUGS (92)
  1. HEMLIBRA [Suspect]
     Active Substance: EMICIZUMAB-KXWH
     Indication: Acquired haemophilia
     Dosage: 6 MILLIGRAM/KILOGRAM, SINGLE
     Route: 050
     Dates: start: 20240110, end: 20240110
  2. HEMLIBRA [Suspect]
     Active Substance: EMICIZUMAB-KXWH
     Dosage: 3 MILLIGRAM/KILOGRAM, SINGLE
     Route: 050
     Dates: start: 20240111, end: 20240111
  3. HEMLIBRA [Suspect]
     Active Substance: EMICIZUMAB-KXWH
     Dosage: 1.5 MILLIGRAM/KILOGRAM, ONCE/WEEK
     Route: 050
     Dates: start: 20240117
  4. VONOPRAZAN FUMARATE [Concomitant]
     Active Substance: VONOPRAZAN FUMARATE
     Dosage: UNK
     Route: 065
  5. LEVOTHYROXINE SODIUM [Concomitant]
     Active Substance: LEVOTHYROXINE SODIUM
     Dosage: UNK
     Route: 065
  6. LINAGLIPTIN [Concomitant]
     Active Substance: LINAGLIPTIN
     Dosage: UNK
     Route: 065
     Dates: start: 20240213
  7. FERRIC CITRATE ANHYDROUS [Concomitant]
     Active Substance: FERRIC CITRATE ANHYDROUS
     Dosage: UNK
     Route: 065
  8. PREDNISOLONE [Concomitant]
     Active Substance: PREDNISOLONE
     Dosage: 70MG/DAY
     Route: 042
     Dates: start: 20231213, end: 20240110
  9. PREDNISOLONE [Concomitant]
     Active Substance: PREDNISOLONE
     Dosage: 35 MILLIGRAM, QD
     Route: 042
     Dates: start: 20240111, end: 20240113
  10. PREDNISOLONE [Concomitant]
     Active Substance: PREDNISOLONE
     Dosage: 20 MILLIGRAM, QD
     Route: 042
     Dates: start: 20240114, end: 20240115
  11. PREDNISOLONE [Concomitant]
     Active Substance: PREDNISOLONE
     Dosage: 15 MILLIGRAM, QD
     Route: 042
     Dates: start: 20240116, end: 20240117
  12. PREDNISOLONE [Concomitant]
     Active Substance: PREDNISOLONE
     Dosage: 10 MILLIGRAM, QD
     Route: 042
     Dates: start: 20240118, end: 20240119
  13. PREDNISOLONE [Concomitant]
     Active Substance: PREDNISOLONE
     Dosage: 5 MILLIGRAM, QD
     Route: 042
     Dates: start: 20240120, end: 20240123
  14. PREDNISOLONE [Concomitant]
     Active Substance: PREDNISOLONE
     Dosage: 2.5MG/DAY
     Route: 042
     Dates: start: 20240124, end: 20240129
  15. PREDNISOLONE [Concomitant]
     Active Substance: PREDNISOLONE
     Dosage: 1MG/DAY
     Route: 042
     Dates: start: 20240130, end: 20240202
  16. BYCLOT [Concomitant]
     Active Substance: COAGULATION FACTOR VII HUMAN\COAGULATION FACTOR X HUMAN
     Dosage: UNK
     Route: 042
     Dates: start: 20231215, end: 20240219
  17. NOVOSEVEN [Concomitant]
     Active Substance: COAGULATION FACTOR VIIA RECOMBINANT HUMAN
     Dosage: UNK
     Route: 042
     Dates: start: 20231222, end: 20240226
  18. CANCIDAS [Concomitant]
     Active Substance: CASPOFUNGIN ACETATE
     Dosage: 50 MILLIGRAM, QD
     Route: 042
     Dates: start: 20231228, end: 20240104
  19. CANCIDAS [Concomitant]
     Active Substance: CASPOFUNGIN ACETATE
     Dosage: 50 MILLIGRAM, QD
     Route: 042
     Dates: start: 20240108, end: 20240109
  20. CANCIDAS [Concomitant]
     Active Substance: CASPOFUNGIN ACETATE
     Dosage: 50 MILLIGRAM, QD
     Route: 042
     Dates: start: 20240111, end: 20240115
  21. CANCIDAS [Concomitant]
     Active Substance: CASPOFUNGIN ACETATE
     Dosage: 50 MILLIGRAM, SINGLE
     Route: 042
     Dates: start: 20240117, end: 20240117
  22. CEFAZOLIN SODIUM [Concomitant]
     Active Substance: CEFAZOLIN SODIUM
     Dosage: 100 MILLILITER, QD
     Route: 042
     Dates: start: 20231229, end: 20240101
  23. CEFAZOLIN SODIUM [Concomitant]
     Active Substance: CEFAZOLIN SODIUM
     Dosage: 1 GRAM, BID
     Route: 042
     Dates: start: 20240103, end: 20240105
  24. CEFAZOLIN SODIUM [Concomitant]
     Active Substance: CEFAZOLIN SODIUM
     Dosage: 1 GRAM, QD
     Route: 042
     Dates: start: 20240108, end: 20240109
  25. CEFAZOLIN SODIUM [Concomitant]
     Active Substance: CEFAZOLIN SODIUM
     Dosage: 1 GRAM, QD
     Route: 042
     Dates: start: 20240111, end: 20240115
  26. CEFAZOLIN SODIUM [Concomitant]
     Active Substance: CEFAZOLIN SODIUM
     Dosage: 1 GRAM, QD
     Route: 042
     Dates: start: 20240117, end: 20240123
  27. FEIBA [Concomitant]
     Active Substance: ANTI-INHIBITOR COAGULANT COMPLEX
     Dosage: 140 MILLILITER
     Route: 050
     Dates: start: 20240105, end: 20240106
  28. LANSOPRAZOLE [Concomitant]
     Active Substance: LANSOPRAZOLE
     Dosage: 30 MILLIGRAM, BID
     Route: 042
     Dates: start: 20240108, end: 20240109
  29. LANSOPRAZOLE [Concomitant]
     Active Substance: LANSOPRAZOLE
     Dosage: 30 MILLIGRAM, BID
     Route: 042
     Dates: start: 20240111, end: 20240111
  30. GANCICLOVIR [Concomitant]
     Active Substance: GANCICLOVIR
     Dosage: 80 MILLIGRAM, SINGLE
     Route: 042
     Dates: start: 20240122, end: 20240122
  31. GANCICLOVIR [Concomitant]
     Active Substance: GANCICLOVIR
     Dosage: 80 MILLIGRAM, SINGLE
     Route: 042
     Dates: start: 20240124, end: 20240124
  32. GANCICLOVIR [Concomitant]
     Active Substance: GANCICLOVIR
     Dosage: 80 MILLIGRAM, SINGLE
     Route: 042
     Dates: start: 20240126, end: 20240126
  33. GANCICLOVIR [Concomitant]
     Active Substance: GANCICLOVIR
     Dosage: 80 MILLIGRAM, SINGLE
     Route: 042
     Dates: start: 20240129, end: 20240129
  34. GANCICLOVIR [Concomitant]
     Active Substance: GANCICLOVIR
     Dosage: 80 MILLIGRAM, SINGLE
     Route: 042
     Dates: start: 20240131, end: 20240131
  35. GANCICLOVIR [Concomitant]
     Active Substance: GANCICLOVIR
     Dosage: 80 MILLIGRAM, SINGLE
     Route: 042
     Dates: start: 20240202, end: 20240202
  36. GANCICLOVIR [Concomitant]
     Active Substance: GANCICLOVIR
     Dosage: 80 MILLIGRAM, SINGLE
     Route: 042
     Dates: start: 20240205, end: 20240205
  37. GANCICLOVIR [Concomitant]
     Active Substance: GANCICLOVIR
     Dosage: 80 MILLIGRAM, SINGLE
     Route: 042
     Dates: start: 20240207, end: 20240207
  38. GANCICLOVIR [Concomitant]
     Active Substance: GANCICLOVIR
     Dosage: 80 MILLIGRAM, SINGLE
     Route: 042
     Dates: start: 20240209, end: 20240209
  39. DAPTOMYCIN [Concomitant]
     Active Substance: DAPTOMYCIN
     Dosage: 455 MILLIGRAM, SINGLE
     Route: 042
     Dates: start: 20240126, end: 20240126
  40. DAPTOMYCIN [Concomitant]
     Active Substance: DAPTOMYCIN
     Dosage: 455 MILLIGRAM, SINGLE
     Route: 042
     Dates: start: 20240216, end: 20240216
  41. DAPTOMYCIN [Concomitant]
     Active Substance: DAPTOMYCIN
     Dosage: 455 MILLIGRAM, SINGLE
     Route: 042
     Dates: start: 20240219, end: 20240219
  42. DAPTOMYCIN [Concomitant]
     Active Substance: DAPTOMYCIN
     Dosage: 455 MILLIGRAM, SINGLE
     Route: 042
     Dates: start: 20240221, end: 20240221
  43. DAPTOMYCIN [Concomitant]
     Active Substance: DAPTOMYCIN
     Dosage: 455 MILLIGRAM, SINGLE
     Route: 042
     Dates: start: 20240223, end: 20240223
  44. DAPTOMYCIN [Concomitant]
     Active Substance: DAPTOMYCIN
     Dosage: 455 MILLIGRAM, SINGLE
     Route: 042
     Dates: start: 20240226, end: 20240226
  45. AMPICILLIN SODIUM [Concomitant]
     Active Substance: AMPICILLIN SODIUM
     Dosage: 1 GRAM, BID
     Route: 042
     Dates: start: 20240128, end: 20240128
  46. AMPICILLIN SODIUM [Concomitant]
     Active Substance: AMPICILLIN SODIUM
     Dosage: 1 GRAM, BID
     Route: 042
     Dates: start: 20240131, end: 20240206
  47. AMPICILLIN SODIUM [Concomitant]
     Active Substance: AMPICILLIN SODIUM
     Dosage: 1 GRAM, SINGLE
     Route: 042
     Dates: start: 20240215, end: 20240215
  48. AMPICILLIN SODIUM [Concomitant]
     Active Substance: AMPICILLIN SODIUM
     Dosage: 1 GRAM, BID
     Route: 042
     Dates: start: 20240217, end: 20240219
  49. SODIUM PHOSPHATE [SODIUM PHOSPHATE DIBASIC;SODIUM PHOSPHATE MONOBASIC] [Concomitant]
     Dosage: 40 MILLILITER, SINGLE
     Route: 042
     Dates: start: 20240208, end: 20240208
  50. SODIUM PHOSPHATE [SODIUM PHOSPHATE DIBASIC;SODIUM PHOSPHATE MONOBASIC] [Concomitant]
     Dosage: 40 MILLILITER, SINGLE
     Route: 042
     Dates: start: 20240222, end: 20240222
  51. TRANSAMIN [Concomitant]
     Active Substance: TRANEXAMIC ACID
     Dosage: 250 MILLIGRAM, BID
     Route: 042
     Dates: start: 20240210, end: 20240210
  52. TRANSAMIN [Concomitant]
     Active Substance: TRANEXAMIC ACID
     Dosage: 250 MILLIGRAM, QD
     Route: 042
     Dates: start: 20240211, end: 20240223
  53. DEXTROSE [Concomitant]
     Active Substance: DEXTROSE MONOHYDRATE
     Dosage: 250 MILLILITER, SINGLE
     Route: 042
     Dates: start: 20240226, end: 20240226
  54. KCL [Concomitant]
     Active Substance: POTASSIUM CHLORIDE
     Dosage: 20 MILLILITER, SINGLE
     Route: 042
     Dates: start: 20240215, end: 20240215
  55. KCL [Concomitant]
     Active Substance: POTASSIUM CHLORIDE
     Dosage: 20 MILLILITER, SINGLE
     Route: 042
     Dates: start: 20240226, end: 20240226
  56. CALCIUM GLUCONATE\DEXTROSE\MAGNESIUM SULFATE\POTASSIUM ACETATE\POTASSI [Concomitant]
     Active Substance: CALCIUM GLUCONATE\DEXTROSE\MAGNESIUM SULFATE\POTASSIUM ACETATE\POTASSIUM PHOSPHATE, DIBASIC\ZINC SUL
     Dosage: 500 MILLILITER, SINGLE
     Route: 042
     Dates: start: 20240109, end: 20240109
  57. CALCIUM GLUCONATE\DEXTROSE\MAGNESIUM SULFATE\POTASSIUM ACETATE\POTASSI [Concomitant]
     Active Substance: CALCIUM GLUCONATE\DEXTROSE\MAGNESIUM SULFATE\POTASSIUM ACETATE\POTASSIUM PHOSPHATE, DIBASIC\ZINC SUL
     Dosage: 500 MILLILITER, SINGLE
     Route: 042
     Dates: start: 20240111, end: 20240111
  58. CALCIUM GLUCONATE\DEXTROSE\MAGNESIUM SULFATE\POTASSIUM ACETATE\POTASSI [Concomitant]
     Active Substance: CALCIUM GLUCONATE\DEXTROSE\MAGNESIUM SULFATE\POTASSIUM ACETATE\POTASSIUM PHOSPHATE, DIBASIC\ZINC SUL
     Dosage: 500 MILLILITER, QD
     Route: 042
     Dates: start: 20240113, end: 20240115
  59. CALCIUM GLUCONATE\DEXTROSE\MAGNESIUM SULFATE\POTASSIUM ACETATE\POTASSI [Concomitant]
     Active Substance: CALCIUM GLUCONATE\DEXTROSE\MAGNESIUM SULFATE\POTASSIUM ACETATE\POTASSIUM PHOSPHATE, DIBASIC\ZINC SUL
     Dosage: 500 MILLILITER, QD
     Route: 042
     Dates: start: 20240117, end: 20240129
  60. CALCIUM GLUCONATE\DEXTROSE\MAGNESIUM SULFATE\POTASSIUM ACETATE\POTASSI [Concomitant]
     Active Substance: CALCIUM GLUCONATE\DEXTROSE\MAGNESIUM SULFATE\POTASSIUM ACETATE\POTASSIUM PHOSPHATE, DIBASIC\ZINC SUL
     Dosage: 500 MILLILITER, QD
     Route: 042
     Dates: start: 20240131, end: 20240206
  61. CALCIUM GLUCONATE\DEXTROSE\MAGNESIUM SULFATE\POTASSIUM ACETATE\POTASSI [Concomitant]
     Active Substance: CALCIUM GLUCONATE\DEXTROSE\MAGNESIUM SULFATE\POTASSIUM ACETATE\POTASSIUM PHOSPHATE, DIBASIC\ZINC SUL
     Dosage: 500 MILLILITER, QD
     Route: 042
     Dates: start: 20240209, end: 20240220
  62. KIDMIN [ALANINE;ARGININE;ASPARTIC ACID;CYSTEINE;GLUTAMIC ACID;HISTIDIN [Concomitant]
     Dosage: 400 MILLILITER, SINGLE
     Route: 042
     Dates: start: 20240109, end: 20240109
  63. KIDMIN [ALANINE;ARGININE;ASPARTIC ACID;CYSTEINE;GLUTAMIC ACID;HISTIDIN [Concomitant]
     Dosage: 400 MILLILITER, SINGLE
     Route: 042
     Dates: start: 20240111, end: 20240111
  64. KIDMIN [ALANINE;ARGININE;ASPARTIC ACID;CYSTEINE;GLUTAMIC ACID;HISTIDIN [Concomitant]
     Dosage: 400 MILLILITER, QD
     Route: 042
     Dates: start: 20240113, end: 20240115
  65. KIDMIN [ALANINE;ARGININE;ASPARTIC ACID;CYSTEINE;GLUTAMIC ACID;HISTIDIN [Concomitant]
     Dosage: 400 MILLILITER, QD
     Route: 042
     Dates: start: 20240117, end: 20240129
  66. KIDMIN [ALANINE;ARGININE;ASPARTIC ACID;CYSTEINE;GLUTAMIC ACID;HISTIDIN [Concomitant]
     Dosage: 400 MILLILITER, QD
     Route: 042
     Dates: start: 20240131, end: 20240206
  67. KIDMIN [ALANINE;ARGININE;ASPARTIC ACID;CYSTEINE;GLUTAMIC ACID;HISTIDIN [Concomitant]
     Dosage: 400 MILLILITER, QD
     Route: 042
     Dates: start: 20240209, end: 20240220
  68. VITAMINS NOS [Concomitant]
     Active Substance: VITAMINS
     Dosage: 1 DOSAGE FORM, SINGLE
     Route: 042
     Dates: start: 20240109, end: 20240109
  69. VITAMINS NOS [Concomitant]
     Active Substance: VITAMINS
     Dosage: 1 DOSAGE FORM, SINGLE
     Route: 042
     Dates: start: 20240111, end: 20240111
  70. VITAMINS NOS [Concomitant]
     Active Substance: VITAMINS
     Dosage: 1 DOSAGE FORM, QD
     Route: 042
     Dates: start: 20240113, end: 20240115
  71. VITAMINS NOS [Concomitant]
     Active Substance: VITAMINS
     Dosage: 1 DOSAGE FORM, QD
     Route: 042
     Dates: start: 20240117, end: 20240129
  72. VITAMINS NOS [Concomitant]
     Active Substance: VITAMINS
     Dosage: 1 DOSAGE FORM, QD
     Route: 042
     Dates: start: 20240131, end: 20240206
  73. VITAMINS NOS [Concomitant]
     Active Substance: VITAMINS
     Dosage: 1 DOSAGE FORM, QD
     Route: 042
     Dates: start: 20240209, end: 20240220
  74. VOLVIX [Concomitant]
     Dosage: 2 MILLILITER, SINGLE
     Route: 042
     Dates: start: 20240109, end: 20240109
  75. VOLVIX [Concomitant]
     Dosage: 2 MILLILITER, SINGLE
     Route: 042
     Dates: start: 20240111, end: 20240111
  76. VOLVIX [Concomitant]
     Dosage: 2 MILLILITER, QD
     Route: 042
     Dates: start: 20240113, end: 20240115
  77. VOLVIX [Concomitant]
     Dosage: 2 MILLILITER, QD
     Route: 042
     Dates: start: 20240117, end: 20240129
  78. VOLVIX [Concomitant]
     Dosage: 2 MILLILITER, QD
     Route: 042
     Dates: start: 20240131, end: 20240206
  79. VOLVIX [Concomitant]
     Dosage: 2 MILLILITER, QD
     Route: 042
     Dates: start: 20240209, end: 20240220
  80. SODIUM CHLORIDE [Concomitant]
     Active Substance: SODIUM CHLORIDE
     Dosage: 20 MILLILITER, SINGLE
     Route: 042
     Dates: start: 20240109, end: 20240109
  81. SODIUM CHLORIDE [Concomitant]
     Active Substance: SODIUM CHLORIDE
     Dosage: 20 MILLILITER, SINGLE
     Route: 042
     Dates: start: 20240111, end: 20240111
  82. SODIUM CHLORIDE [Concomitant]
     Active Substance: SODIUM CHLORIDE
     Dosage: 20 MILLILITER, QD
     Route: 042
     Dates: start: 20240113, end: 20240115
  83. SODIUM CHLORIDE [Concomitant]
     Active Substance: SODIUM CHLORIDE
     Dosage: 20 MILLILITER, QD
     Route: 042
     Dates: start: 20240117, end: 20240129
  84. SODIUM CHLORIDE [Concomitant]
     Active Substance: SODIUM CHLORIDE
     Dosage: 20 MILLILITER, QD
     Route: 042
     Dates: start: 20240131, end: 20240206
  85. SODIUM CHLORIDE [Concomitant]
     Active Substance: SODIUM CHLORIDE
     Dosage: 20 MILLILITER, QD
     Route: 042
     Dates: start: 20240209, end: 20240220
  86. HUMULIN R [Concomitant]
     Active Substance: INSULIN HUMAN
     Dosage: 32 INTERNATIONAL UNIT, SINGLE
     Route: 042
     Dates: start: 20240109, end: 20240109
  87. HUMULIN R [Concomitant]
     Active Substance: INSULIN HUMAN
     Dosage: 32 INTERNATIONAL UNIT, SINGLE
     Route: 042
     Dates: start: 20240111, end: 20240111
  88. HUMULIN R [Concomitant]
     Active Substance: INSULIN HUMAN
     Dosage: 25 INTERNATIONAL UNIT, QD
     Route: 042
     Dates: start: 20240113, end: 20240115
  89. HUMULIN R [Concomitant]
     Active Substance: INSULIN HUMAN
     Dosage: 25 INTERNATIONAL UNIT, QD
     Route: 042
     Dates: start: 20240117, end: 20240122
  90. HUMULIN R [Concomitant]
     Active Substance: INSULIN HUMAN
     Dosage: 8 INTERNATIONAL UNIT, QD
     Route: 042
     Dates: start: 20240123, end: 20240129
  91. HUMULIN R [Concomitant]
     Active Substance: INSULIN HUMAN
     Dosage: 8 INTERNATIONAL UNIT, QD
     Route: 042
     Dates: start: 20240131, end: 20240206
  92. HUMULIN R [Concomitant]
     Active Substance: INSULIN HUMAN
     Dosage: 8 INTERNATIONAL UNIT, QD
     Route: 042
     Dates: start: 20240209, end: 20240220

REACTIONS (6)
  - Haemorrhage subcutaneous [Not Recovered/Not Resolved]
  - Gastrointestinal erosion [Unknown]
  - Enterocolitis [Unknown]
  - Activated partial thromboplastin time prolonged [Unknown]
  - Melaena [Recovered/Resolved]
  - Catheter site haemorrhage [Recovered/Resolved]

NARRATIVE: CASE EVENT DATE: 20240722
